FAERS Safety Report 8011626-0 (Version None)
Quarter: 2011Q4

REPORT INFORMATION
  Report Type: 
  Country: None (occurrence: None)
  Receive Date: 20111228
  Receipt Date: 20111219
  Transmission Date: 20120403
  Serious: Yes (Hospitalization, Other)
  Sender: FDA-Public Use
  Company Number: US-BAYER-2011-048341

PATIENT
  Age: 32 Year
  Sex: Female
  Weight: 72.562 kg

DRUGS (14)
  1. DOXYCYCLINE [Concomitant]
     Dosage: UNK
     Dates: start: 20080101
  2. CITALOPRAM HYDROBROMIDE [Concomitant]
     Dosage: UNK
     Dates: start: 20080101, end: 20090101
  3. AZITHROMYCIN [Concomitant]
     Dosage: UNK
     Dates: start: 20070101
  4. AZITHROMYCIN [Concomitant]
     Dosage: UNK
     Dates: start: 20080101
  5. METHYLPREDNISOLONE [Concomitant]
     Dosage: 4 MG, UNK
     Route: 048
     Dates: start: 20090520
  6. YAZ [Suspect]
     Indication: CONTRACEPTION
     Dosage: UNK UNK, UNK
     Route: 048
     Dates: start: 20070101, end: 20090602
  7. DOXYCYCLINE [Concomitant]
     Dosage: UNK
     Dates: start: 20090101
  8. ALPRAZOLAM [Concomitant]
     Dosage: UNK
     Dates: start: 20090101
  9. VITAMIN C [Concomitant]
  10. FLUTICASONE FUROATE [Concomitant]
     Dosage: UNK
     Dates: start: 20060101, end: 20090101
  11. AZITHROMYCIN [Concomitant]
     Dosage: UNK
     Dates: start: 20090101
  12. CEFUROXIME [Concomitant]
     Dosage: UNK
     Dates: start: 20090101
  13. NSAID'S [Concomitant]
     Dosage: AS NEEDED
     Dates: start: 20010101, end: 20110101
  14. ZYRTEC [Concomitant]
     Dosage: UNK
     Dates: start: 20060101

REACTIONS (11)
  - PANIC ATTACK [None]
  - INJURY [None]
  - DEPRESSION [None]
  - PULMONARY INFARCTION [None]
  - CHEST PAIN [None]
  - PAIN [None]
  - PULMONARY EMBOLISM [None]
  - CHEST DISCOMFORT [None]
  - DYSPNOEA [None]
  - ANXIETY [None]
  - EMOTIONAL DISTRESS [None]
